FAERS Safety Report 24905339 (Version 1)
Quarter: 2025Q1

REPORT INFORMATION
  Report Type: Spontaneous
  Country: US (occurrence: US)
  Receive Date: 20250130
  Receipt Date: 20250130
  Transmission Date: 20250409
  Serious: No
  Sender: MAYNE
  Company Number: US-MAYNE PHARMA-2025MYN000040

PATIENT

DRUGS (2)
  1. RHOFADE [Suspect]
     Active Substance: OXYMETAZOLINE HYDROCHLORIDE
     Indication: Rosacea
     Dosage: 1 %, QD
     Route: 061
     Dates: end: 20250116
  2. RHOFADE [Suspect]
     Active Substance: OXYMETAZOLINE HYDROCHLORIDE
     Indication: Erythema

REACTIONS (3)
  - Application site erythema [Unknown]
  - Condition aggravated [Unknown]
  - Drug ineffective [Unknown]
